FAERS Safety Report 5362019-6 (Version None)
Quarter: 2007Q2

REPORT INFORMATION
  Report Type: 
  Country: None (occurrence: None)
  Receive Date: 20070530
  Receipt Date: 20070309
  Transmission Date: 20071010
  Serious: No
  Sender: FDA-Public Use
  Company Number: 2007PV031468

PATIENT
  Age: 77 Year
  Sex: Female
  Weight: 77.7919 kg

DRUGS (3)
  1. BYETTA [Suspect]
     Indication: DIABETES MELLITUS
     Dosage: 10 MCG; BID; SC, 5 MCG; BID; SC
     Route: 058
     Dates: start: 20070203, end: 20070301
  2. BYETTA [Suspect]
     Indication: DIABETES MELLITUS
     Dosage: 10 MCG; BID; SC, 5 MCG; BID; SC
     Route: 058
     Dates: start: 20070301
  3. METFORMIN HCL [Concomitant]

REACTIONS (3)
  - DRUG EFFECT DECREASED [None]
  - WEIGHT DECREASED [None]
  - WEIGHT INCREASED [None]
